FAERS Safety Report 19171619 (Version 1)
Quarter: 2021Q2

REPORT INFORMATION
  Report Type: Spontaneous
  Country: CA (occurrence: CA)
  Receive Date: 20210423
  Receipt Date: 20210423
  Transmission Date: 20210717
  Serious: Yes (Other)
  Sender: FDA-Public Use
  Company Number: CA-BAXTER-2021BAX008282

PATIENT
  Age: 51 Year
  Sex: Female

DRUGS (2)
  1. HYDROMORPHONE HCL [Concomitant]
     Active Substance: HYDROMORPHONE HYDROCHLORIDE
     Indication: PRODUCT USED FOR UNKNOWN INDICATION
     Dosage: DOSAGE FORM: SOLUTION INTRAMUSCULAR
     Route: 065
  2. LIDOCAINE HCL 0.4% AND DEXTROSE 5% INJ [Suspect]
     Active Substance: DEXTROSE\LIDOCAINE HYDROCHLORIDE
     Indication: POSTOPERATIVE ANALGESIA
     Dosage: DOSAGE FORM: SOLUTION INTRAVENOUS
     Route: 041

REACTIONS (5)
  - Hallucination [Unknown]
  - Screaming [Unknown]
  - Abnormal behaviour [Unknown]
  - Emotional distress [Unknown]
  - Suspiciousness [Unknown]
